FAERS Safety Report 13387829 (Version 1)
Quarter: 2017Q1

REPORT INFORMATION
  Report Type: Spontaneous
  Country: US (occurrence: US)
  Receive Date: 20170330
  Receipt Date: 20170330
  Transmission Date: 20170429
  Serious: Yes (Other)
  Sender: FDA-Public Use
  Company Number: US-BRISTOL-MYERS SQUIBB COMPANY-BMS-2017-027647

PATIENT
  Sex: Male

DRUGS (2)
  1. ABILIFY [Suspect]
     Active Substance: ARIPIPRAZOLE
     Indication: SCHIZOAFFECTIVE DISORDER BIPOLAR TYPE
     Dosage: 15 MG, QD
     Route: 065
     Dates: end: 201509
  2. DEPAKOTE [Concomitant]
     Active Substance: DIVALPROEX SODIUM
     Indication: AFFECTIVE DISORDER
     Route: 065

REACTIONS (5)
  - Type 2 diabetes mellitus [Unknown]
  - Treatment noncompliance [Unknown]
  - Hypersexuality [Recovered/Resolved]
  - Hyperphagia [Unknown]
  - Eructation [Unknown]

NARRATIVE: CASE EVENT DATE: 2013
